FAERS Safety Report 9887618 (Version 1)
Quarter: 2014Q1

REPORT INFORMATION
  Report Type: Spontaneous
  Country: US (occurrence: None)
  Receive Date: 20140206
  Receipt Date: 20140206
  Transmission Date: 20141002
  Serious: Yes (Death)
  Sender: FDA-Public Use
  Company Number: AUR-APL-2014-00966

PATIENT
  Age: 31 Year
  Sex: Female

DRUGS (3)
  1. QUETIAPINE (QUETIAPINE) [Suspect]
     Indication: PRODUCT USED FOR UNKNOWN INDICATION
  2. SERTRALINE (SERTRALINE) [Suspect]
  3. HEROIN (DIAMORPHINE) (DIAMORPHINE) [Suspect]

REACTIONS (1)
  - Drug abuse [None]
